FAERS Safety Report 10973701 (Version 1)
Quarter: 2015Q1

REPORT INFORMATION
  Report Type: Spontaneous
  Country: US (occurrence: None)
  Receive Date: 20150331
  Receipt Date: 20150331
  Transmission Date: 20150721
  Serious: No
  Sender: FDA-Public Use
  Company Number: None

PATIENT
  Age: 38 Year
  Sex: Female
  Weight: 92.99 kg

DRUGS (10)
  1. LEVOTHYROXINE [Suspect]
     Active Substance: LEVOTHYROXINE
     Indication: AUTOIMMUNE THYROIDITIS
     Route: 048
     Dates: start: 20140520, end: 20150329
  2. COMPOUNDED TESTOSTERONE [Concomitant]
  3. CALCIUM [Concomitant]
     Active Substance: CALCIUM
  4. ESTRACE [Concomitant]
     Active Substance: ESTRADIOL
  5. OMEGA 3 [Concomitant]
     Active Substance: OMEGA-3 FATTY ACIDS
  6. MULTIVITAMIN [Concomitant]
     Active Substance: VITAMINS
  7. OTEZLA [Concomitant]
     Active Substance: APREMILAST
  8. PROGESTERONE. [Concomitant]
     Active Substance: PROGESTERONE
  9. LEVOTHYROXINE [Concomitant]
     Active Substance: LEVOTHYROXINE
  10. FEMRING [Concomitant]
     Active Substance: ESTRADIOL ACETATE

REACTIONS (1)
  - Tendonitis [None]
